FAERS Safety Report 5725401-0 (Version None)
Quarter: 2008Q2

REPORT INFORMATION
  Report Type: 
  Country: None (occurrence: None)
  Receive Date: 20080501
  Receipt Date: 20080419
  Transmission Date: 20081010
  Serious: Yes (Death, Other)
  Sender: FDA-Public Use
  Company Number: US-PFIZER INC-2008021162

PATIENT
  Age: 32 Year
  Sex: Male

DRUGS (2)
  1. CHANTIX [Suspect]
     Indication: SMOKING CESSATION THERAPY
  2. WELLBUTRIN XL [Concomitant]

REACTIONS (5)
  - ABNORMAL BEHAVIOUR [None]
  - ALCOHOL PROBLEM [None]
  - ANGER [None]
  - BIPOLAR DISORDER [None]
  - ROAD TRAFFIC ACCIDENT [None]
